FAERS Safety Report 7705395-9 (Version None)
Quarter: 2011Q3

REPORT INFORMATION
  Report Type: 
  Country: None (occurrence: None)
  Receive Date: 20110824
  Receipt Date: 20110816
  Transmission Date: 20111222
  Serious: Yes (Other)
  Sender: FDA-Public Use
  Company Number: US-US-EMD SERONO, INC.-231457J07USA

PATIENT
  Sex: Female
  Weight: 61 kg

DRUGS (6)
  1. FLEXERIL [Concomitant]
     Indication: MUSCLE SPASMS
     Dates: start: 20061201
  2. REBIF [Suspect]
     Indication: MULTIPLE SCLEROSIS
     Route: 058
     Dates: start: 20070619
  3. LEXAPRO [Concomitant]
     Indication: DEPRESSION
  4. MULTI-VITAMIN [Concomitant]
  5. XANAX [Concomitant]
     Indication: ANXIETY
     Dates: start: 19930101
  6. ADVIL LIQUI-GELS [Concomitant]
     Indication: OPTIC NEURITIS

REACTIONS (1)
  - RECTAL CANCER STAGE IV [None]
